FAERS Safety Report 13601738 (Version 1)
Quarter: 2017Q2

REPORT INFORMATION
  Report Type: Spontaneous
  Country: DE (occurrence: DE)
  Receive Date: 20170601
  Receipt Date: 20170601
  Transmission Date: 20170830
  Serious: Yes (Hospitalization, Other)
  Sender: FDA-Public Use
  Company Number: DE-ACTELION-A-CH2017-152093

PATIENT
  Age: 73 Year
  Sex: Female
  Weight: 56 kg

DRUGS (11)
  1. CELLCEPT [Concomitant]
     Active Substance: MYCOPHENOLATE MOFETIL\MYCOPHENOLATE MOFETIL HYDROCHLORIDE
     Dosage: UNK
     Dates: start: 200706
  2. TRACLEER [Suspect]
     Active Substance: BOSENTAN
     Dosage: 125 MG, TID
     Route: 048
     Dates: start: 201611
  3. PREDNISOLON [Concomitant]
     Active Substance: PREDNISOLONE
     Dosage: 5 MG, UNK
  4. TRACLEER [Suspect]
     Active Substance: BOSENTAN
     Indication: SKIN ULCER
     Dosage: 125 MG, OD
     Route: 048
     Dates: start: 20120417
  5. RAMIPRIL. [Concomitant]
     Active Substance: RAMIPRIL
  6. ILOMEDIN [Concomitant]
     Active Substance: ILOPROST TROMETHAMINE
     Dosage: UNK
  7. TRACLEER [Suspect]
     Active Substance: BOSENTAN
     Dosage: 125 MG, BID
     Route: 048
     Dates: start: 201309
  8. ENDOXAN [Concomitant]
     Active Substance: CYCLOPHOSPHAMIDE
     Dosage: UNK
     Dates: start: 200512
  9. REVATIO [Concomitant]
     Active Substance: SILDENAFIL CITRATE
     Dosage: 10 MG, BID
     Dates: start: 201309
  10. PANTOPRAZOL [Concomitant]
     Active Substance: PANTOPRAZOLE SODIUM
  11. MTX [Concomitant]
     Active Substance: METHOTREXATE SODIUM
     Indication: SCLERODERMA
     Dosage: 20 MG, UNK
     Dates: start: 2002

REACTIONS (15)
  - Staphylococcal sepsis [Unknown]
  - Skin necrosis [Unknown]
  - Skin ulcer [Unknown]
  - Mitral valve calcification [Unknown]
  - Pain [Unknown]
  - Peripheral swelling [Unknown]
  - Hyperthermia [Unknown]
  - Intracardiac thrombus [Unknown]
  - Erysipelas [Unknown]
  - Device related infection [Unknown]
  - Oedema peripheral [Unknown]
  - Nail dystrophy [Unknown]
  - Nail discolouration [Unknown]
  - Mitral valve disease mixed [Unknown]
  - Pneumonia staphylococcal [Unknown]

NARRATIVE: CASE EVENT DATE: 201204
